FAERS Safety Report 23908108 (Version 1)
Quarter: 2024Q2

REPORT INFORMATION
  Report Type: Spontaneous
  Country: US (occurrence: None)
  Receive Date: 20240524
  Receipt Date: 20240524
  Transmission Date: 20240716
  Serious: Yes (Hospitalization, Disabling)
  Sender: FDA-Public Use
  Company Number: None

PATIENT
  Age: 53 Year
  Sex: Male
  Weight: 74.25 kg

DRUGS (4)
  1. LORATADINE [Suspect]
     Active Substance: LORATADINE
     Indication: Seasonal allergy
     Dosage: 1 TABLET DAILY ORAL
     Route: 048
     Dates: start: 20240202, end: 20240403
  2. MOTRIN [Concomitant]
     Active Substance: IBUPROFEN
  3. VITAMIN D [Concomitant]
     Active Substance: VITAMIN D NOS
  4. TUMS [Concomitant]
     Active Substance: CALCIUM CARBONATE

REACTIONS (11)
  - Anxiety [None]
  - Paranoia [None]
  - Panic attack [None]
  - Ventricular extrasystoles [None]
  - Dizziness [None]
  - Asthenia [None]
  - Impaired work ability [None]
  - Muscular weakness [None]
  - Decreased appetite [None]
  - Weight decreased [None]
  - Dizziness [None]

NARRATIVE: CASE EVENT DATE: 20240321
